FAERS Safety Report 23053653 (Version 1)
Quarter: 2023Q4

REPORT INFORMATION
  Report Type: Spontaneous
  Country: MX (occurrence: None)
  Receive Date: 20231011
  Receipt Date: 20231011
  Transmission Date: 20240110
  Serious: Yes (Other)
  Sender: FDA-Public Use
  Company Number: 2023A227341

PATIENT
  Age: 29187 Day
  Sex: Female
  Weight: 73 kg

DRUGS (1)
  1. BUDESONIDE\FORMOTEROL\GLYCOPYRRONIUM [Suspect]
     Active Substance: BUDESONIDE\FORMOTEROL\GLYCOPYRRONIUM
     Indication: Chronic obstructive pulmonary disease
     Dosage: 4 UG/INHAL4UG/INHAL EVERY 12 HOURS
     Route: 055
     Dates: start: 20230703, end: 20230711

REACTIONS (4)
  - Burning sensation [Recovering/Resolving]
  - Tongue erythema [Recovering/Resolving]
  - Pharyngeal erythema [Recovering/Resolving]
  - Oral mucosal erythema [Recovering/Resolving]

NARRATIVE: CASE EVENT DATE: 20230807
